FAERS Safety Report 6463167-X (Version None)
Quarter: 2009Q4

REPORT INFORMATION
  Report Type: 
  Country: None (occurrence: None)
  Receive Date: 20091123
  Receipt Date: 20091111
  Transmission Date: 20100525
  Serious: Yes (Other)
  Sender: FDA-Public Use
  Company Number: 90896

PATIENT
  Age: 17 Year
  Sex: Male

DRUGS (1)
  1. CYTARABINE [Suspect]

REACTIONS (2)
  - MEDICATION ERROR [None]
  - PRODUCT RECONSTITUTION ISSUE [None]
